FAERS Safety Report 7919452-5 (Version None)
Quarter: 2011Q4

REPORT INFORMATION
  Report Type: 
  Country: None (occurrence: None)
  Receive Date: 20111116
  Receipt Date: 20111116
  Transmission Date: 20120403
  Serious: Yes (Other)
  Sender: FDA-Public Use
  Company Number: None

PATIENT
  Age: 36 Year
  Sex: Female
  Weight: 77.1115 kg

DRUGS (1)
  1. LISTERINE ZERO MOUTHWASH CLEAN MINT (ORAL CARE PRODUCTS) LIQUID [Suspect]
     Indication: PRODUCT USED FOR UNKNOWN INDICATION
     Dosage: UNSPECIFIED AMOUNT ONCE TOPICAL
     Route: 061
     Dates: start: 20111026, end: 20111026

REACTIONS (7)
  - DYSPNOEA [None]
  - ORAL MUCOSAL EXFOLIATION [None]
  - ACCIDENTAL EXPOSURE [None]
  - ANAPHYLACTIC SHOCK [None]
  - OEDEMA PERIPHERAL [None]
  - APPLICATION SITE BURN [None]
  - IMPAIRED WORK ABILITY [None]
